FAERS Safety Report 10548189 (Version 1)
Quarter: 2014Q4

REPORT INFORMATION
  Report Type: Spontaneous
  Country: US (occurrence: None)
  Receive Date: 20141027
  Receipt Date: 20141027
  Transmission Date: 20150529
  Serious: Yes (Life-Threatening, Hospitalization)
  Sender: FDA-Public Use
  Company Number: None

PATIENT
  Age: 87 Year
  Sex: Male
  Weight: 126.8 kg

DRUGS (1)
  1. RITUXIMAB [Suspect]
     Active Substance: RITUXIMAB
     Indication: BASAL CELL CARCINOMA
     Route: 042
     Dates: start: 20130923, end: 20130923

REACTIONS (7)
  - Respiratory distress [None]
  - Respiratory depression [None]
  - Tachypnoea [None]
  - Flushing [None]
  - Dyspnoea [None]
  - Tachycardia [None]
  - Hypotension [None]

NARRATIVE: CASE EVENT DATE: 20130923
